FAERS Safety Report 11908821 (Version 8)
Quarter: 2018Q4

REPORT INFORMATION
  Report Type: Spontaneous
  Country: US (occurrence: US)
  Receive Date: 20160111
  Receipt Date: 20181116
  Transmission Date: 20190204
  Serious: Yes (Other)
  Sender: FDA-Public Use
  Company Number: US-ACTELION-A-US2016-129592

PATIENT
  Age: 56 Year
  Sex: Female
  Weight: 104.31 kg

DRUGS (4)
  1. TRACLEER [Suspect]
     Active Substance: BOSENTAN
     Indication: PULMONARY HYPERTENSION
     Dosage: 125 MG, BID
     Route: 048
     Dates: start: 20141002
  2. WARFARIN [Concomitant]
     Active Substance: WARFARIN
  3. XARELTO [Concomitant]
     Active Substance: RIVAROXABAN
  4. TRACLEER [Suspect]
     Active Substance: BOSENTAN
     Dosage: UNK
     Route: 048

REACTIONS (22)
  - Sciatica [Unknown]
  - Pharyngitis [Unknown]
  - Cough [Unknown]
  - Anxiety [Unknown]
  - Tracheostomy [Unknown]
  - Pain in extremity [Unknown]
  - Oropharyngeal pain [Unknown]
  - Unevaluable event [Unknown]
  - Product dose omission [Unknown]
  - Presyncope [Unknown]
  - Tracheal haemorrhage [Unknown]
  - Stress [Unknown]
  - Heart rate increased [Unknown]
  - Fatigue [Unknown]
  - Headache [Unknown]
  - Dyspnoea [Unknown]
  - Chest pain [Unknown]
  - Condition aggravated [Unknown]
  - Pain [Unknown]
  - Neck pain [Unknown]
  - Muscle spasms [Unknown]
  - Dizziness [Unknown]

NARRATIVE: CASE EVENT DATE: 201609
